FAERS Safety Report 8063261-6 (Version None)
Quarter: 2012Q1

REPORT INFORMATION
  Report Type: 
  Country: None (occurrence: None)
  Receive Date: 20120123
  Receipt Date: 20120118
  Transmission Date: 20120608
  Serious: Yes (Death, Life-Threatening, Other)
  Sender: FDA-Public Use
  Company Number: PHHO2009JP05636

PATIENT
  Sex: Male
  Weight: 57 kg

DRUGS (4)
  1. EURAX [Concomitant]
     Indication: RASH
  2. HIRUDOID [Concomitant]
     Indication: RASH
  3. TASIGNA [Suspect]
     Indication: CHRONIC MYELOID LEUKAEMIA
     Dosage: 400 MG, BID
     Route: 048
     Dates: start: 20080630, end: 20090414
  4. ZYRTEC [Concomitant]
     Indication: RASH

REACTIONS (11)
  - FATIGUE [None]
  - NEOPLASM [None]
  - GASTRIC CANCER [None]
  - INDURATION [None]
  - DECREASED APPETITE [None]
  - COMA [None]
  - HEPATIC FUNCTION ABNORMAL [None]
  - RENAL IMPAIRMENT [None]
  - HEPATOMEGALY [None]
  - METASTASES TO LIVER [None]
  - ABDOMINAL PAIN [None]
